FAERS Safety Report 13552066 (Version 1)
Quarter: 2017Q2

REPORT INFORMATION
  Report Type: Spontaneous
  Country: JP (occurrence: JP)
  Receive Date: 20170516
  Receipt Date: 20170516
  Transmission Date: 20170830
  Serious: Yes (Other)
  Sender: FDA-Public Use
  Company Number: PHJP2017JP015922

PATIENT
  Age: 46 Year
  Sex: Female

DRUGS (1)
  1. CARBAMAZEPINE. [Suspect]
     Active Substance: CARBAMAZEPINE
     Indication: EPILEPSY
     Dosage: UNK
     Route: 065

REACTIONS (7)
  - Hyponatraemia [Recovered/Resolved]
  - Polyuria [Unknown]
  - Anorexia nervosa [Unknown]
  - Fatigue [Unknown]
  - Central nervous system lesion [Recovered/Resolved]
  - Diabetes insipidus [Unknown]
  - Blood osmolarity increased [Unknown]
